FAERS Safety Report 5569207-4 (Version None)
Quarter: 2007Q4

REPORT INFORMATION
  Report Type: 
  Country: None (occurrence: None)
  Receive Date: 20071220
  Receipt Date: 20070905
  Transmission Date: 20080405
  Serious: No
  Sender: FDA-Public Use
  Company Number: A0678858A

PATIENT
  Age: 64 Year
  Sex: Male

DRUGS (4)
  1. AVODART [Suspect]
     Indication: BENIGN PROSTATIC HYPERPLASIA
     Dosage: .5MG PER DAY
     Route: 048
     Dates: start: 20060501
  2. VIAGRA [Concomitant]
  3. PROZAC [Concomitant]
  4. LITHOBID [Concomitant]

REACTIONS (1)
  - LIBIDO DECREASED [None]
